FAERS Safety Report 5856664-9 (Version None)
Quarter: 2008Q3

REPORT INFORMATION
  Report Type: 
  Country: None (occurrence: None)
  Receive Date: 20080825
  Receipt Date: 20080815
  Transmission Date: 20090109
  Serious: Yes (Other)
  Sender: FDA-Public Use
  Company Number: US-PFIZER INC-2008068544

PATIENT
  Age: 12 Year
  Sex: Male
  Weight: 41.7 kg

DRUGS (1)
  1. SOLU-MEDROL [Suspect]
     Indication: COLITIS ULCERATIVE
     Route: 042

REACTIONS (2)
  - COLITIS [None]
  - DRUG EFFECT DECREASED [None]
